FAERS Safety Report 6151058-3 (Version None)
Quarter: 2009Q2

REPORT INFORMATION
  Report Type: 
  Country: None (occurrence: None)
  Receive Date: 20090410
  Receipt Date: 20090331
  Transmission Date: 20091009
  Serious: No
  Sender: FDA-Public Use
  Company Number: US-JNJFOC-20090103160

PATIENT
  Sex: Female
  Weight: 120.2 kg

DRUGS (16)
  1. FENTANYL TRANSDERMAL SYSTEM [Suspect]
     Indication: FIBROMYALGIA
     Dosage: TWO 100UG/HR PATCHES AND ONE 25UG/HR PATCH
     Route: 062
  2. NAPROXEN [Concomitant]
     Route: 048
  3. NORETHINDRONE [Concomitant]
     Route: 048
  4. PREMARIN [Concomitant]
     Route: 048
  5. ALBUTEROL [Concomitant]
     Indication: WHEEZING
     Dosage: AS NEEDED
     Route: 055
  6. SYNTHROID [Concomitant]
     Indication: THYROID DISORDER
     Route: 048
  7. ASCORBIC ACID [Concomitant]
     Route: 048
  8. KLONOPIN [Concomitant]
     Indication: ANXIETY
     Route: 048
  9. WELLBUTRIN [Concomitant]
     Route: 048
  10. DIOVAN [Concomitant]
     Route: 048
  11. LASIX [Concomitant]
     Route: 048
  12. CYMBALTA [Concomitant]
     Indication: FIBROMYALGIA
     Route: 048
  13. LYRICA [Concomitant]
     Route: 048
  14. AMBIEN [Concomitant]
     Dosage: AT BEDTIME AS NEEDED
     Route: 048
  15. MS CONTIN [Concomitant]
     Indication: PAIN
  16. MOBIC [Concomitant]
     Indication: PAIN

REACTIONS (4)
  - ANXIETY [None]
  - INAPPROPRIATE SCHEDULE OF DRUG ADMINISTRATION [None]
  - PAIN [None]
  - PRODUCT QUALITY ISSUE [None]
